FAERS Safety Report 22224456 (Version 1)
Quarter: 2023Q2

REPORT INFORMATION
  Report Type: Spontaneous
  Country: US (occurrence: None)
  Receive Date: 20230417
  Receipt Date: 20230417
  Transmission Date: 20230722
  Serious: Yes (Hospitalization)
  Sender: FDA-Public Use
  Company Number: None

PATIENT
  Age: 92 Year
  Sex: Female
  Weight: 71.1 kg

DRUGS (13)
  1. TRAMADOL [Suspect]
     Active Substance: TRAMADOL
     Indication: Back pain
     Dosage: OTHER QUANTITY : 1 TABLET(S);?FREQUENCY : AS NEEDED;?
     Route: 048
     Dates: start: 20230408, end: 20230408
  2. ENTRESTO [Concomitant]
     Active Substance: SACUBITRIL\VALSARTAN
  3. CLOPIDOGREL [Concomitant]
     Active Substance: CLOPIDOGREL BISULFATE
  4. METFORMIN [Concomitant]
     Active Substance: METFORMIN HYDROCHLORIDE
  5. ATORVASTATIN [Concomitant]
     Active Substance: ATORVASTATIN
  6. CARVEDILOL [Concomitant]
     Active Substance: CARVEDILOL
  7. IPRATROPIUM [Concomitant]
     Active Substance: IPRATROPIUM
  8. MECLIZINE [Concomitant]
     Active Substance: MECLIZINE HYDROCHLORIDE
  9. COENZYME Q10 [Concomitant]
     Active Substance: DIETARY SUPPLEMENT\UBIDECARENONE
  10. VITAMIN C [Concomitant]
     Active Substance: ASCORBIC ACID
  11. Berberi [Concomitant]
  12. ALPHA LIPOIC ACID [Concomitant]
     Active Substance: .ALPHA.-LIPOIC ACID
  13. Maxi One Iron Free [Concomitant]

REACTIONS (3)
  - Feeling abnormal [None]
  - Vertigo [None]
  - Retching [None]

NARRATIVE: CASE EVENT DATE: 20230408
